FAERS Safety Report 16478728 (Version 3)
Quarter: 2019Q4

REPORT INFORMATION
  Report Type: Spontaneous
  Country: US (occurrence: US)
  Receive Date: 20190626
  Receipt Date: 20191016
  Transmission Date: 20200122
  Serious: No
  Sender: FDA-Public Use
  Company Number: US-PFIZER INC-2019272234

PATIENT
  Age: 73 Year
  Sex: Female
  Weight: 59 kg

DRUGS (2)
  1. SOMADERM [Concomitant]
     Dosage: UNK
  2. IBRANCE [Suspect]
     Active Substance: PALBOCICLIB
     Indication: BREAST CANCER METASTATIC
     Dosage: 75 MG, CYCLIC, [DAYS 1-21 Q28 DAYS]
     Route: 048
     Dates: start: 20190601

REACTIONS (3)
  - White blood cell count decreased [Unknown]
  - Dyspnoea [Unknown]
  - Pain in extremity [Unknown]

NARRATIVE: CASE EVENT DATE: 201906
